FAERS Safety Report 9260534 (Version 3)
Quarter: 2014Q1

REPORT INFORMATION
  Report Type: Spontaneous
  Country: US (occurrence: US)
  Receive Date: 20130429
  Receipt Date: 20140123
  Transmission Date: 20141002
  Serious: Yes (Hospitalization)
  Sender: FDA-Public Use
  Company Number: 2013SP001150

PATIENT
  Age: 53 Year
  Sex: Female
  Weight: 77 kg

DRUGS (17)
  1. LATUDA [Suspect]
     Indication: SCHIZOAFFECTIVE DISORDER
     Route: 048
     Dates: start: 2013
  2. LATUDA [Suspect]
     Indication: SCHIZOAFFECTIVE DISORDER
     Route: 048
     Dates: start: 201301
  3. LATUDA [Suspect]
     Indication: SCHIZOAFFECTIVE DISORDER
     Route: 048
     Dates: start: 201210, end: 201304
  4. LAMICTAL [Concomitant]
     Indication: MOOD SWINGS
     Route: 048
  5. LAMICTAL [Concomitant]
     Indication: MOOD SWINGS
     Route: 048
     Dates: start: 201210
  6. TRAZODONE [Concomitant]
     Indication: INSOMNIA
     Route: 048
  7. TRAZODONE [Concomitant]
     Indication: INSOMNIA
     Route: 048
     Dates: start: 201210
  8. TRAZODONE [Concomitant]
     Indication: INSOMNIA
     Route: 048
  9. AMBIEN [Concomitant]
     Indication: INSOMNIA
     Route: 048
     Dates: start: 201302
  10. KLONOPIN [Concomitant]
     Indication: ANXIETY
     Route: 048
     Dates: start: 201210
  11. WELLBUTRIN [Concomitant]
     Indication: DEPRESSION
     Route: 048
     Dates: start: 20130227, end: 20130417
  12. LIPITOR [Concomitant]
     Indication: BLOOD CHOLESTEROL INCREASED
     Route: 048
  13. SEROQUEL [Concomitant]
     Indication: PRODUCT USED FOR UNKNOWN INDICATION
     Dates: end: 20121017
  14. LOVAZA [Concomitant]
     Indication: BLOOD TRIGLYCERIDES INCREASED
     Route: 048
  15. EFFEXOR [Concomitant]
     Indication: DEPRESSION
     Route: 048
     Dates: start: 20130417
  16. EFFEXOR [Concomitant]
     Indication: DEPRESSION
     Route: 048
  17. ZYPREXA [Concomitant]
     Indication: WEIGHT DECREASED
     Dates: end: 20121017

REACTIONS (9)
  - Depression [Unknown]
  - Suicidal ideation [Unknown]
  - Weight decreased [Not Recovered/Not Resolved]
  - Alopecia [Not Recovered/Not Resolved]
  - Feeling of body temperature change [Not Recovered/Not Resolved]
  - Decreased appetite [Not Recovered/Not Resolved]
  - Nausea [Not Recovered/Not Resolved]
  - Insomnia [Not Recovered/Not Resolved]
  - Vision blurred [Recovered/Resolved]
